FAERS Safety Report 8486316-0 (Version None)
Quarter: 2012Q3

REPORT INFORMATION
  Report Type: 
  Country: None (occurrence: None)
  Receive Date: 20120703
  Receipt Date: 20120622
  Transmission Date: 20120928
  Serious: Yes (Hospitalization)
  Sender: FDA-Public Use
  Company Number: US-GLAXOSMITHKLINE-A0894991A

PATIENT
  Age: 64 Year
  Sex: Male
  Weight: 94.5 kg

DRUGS (6)
  1. AVANDIA [Suspect]
     Indication: DIABETES MELLITUS
     Dosage: 8MG PER DAY
     Route: 048
     Dates: end: 20070901
  2. LITHIUM CARBONATE [Concomitant]
  3. LYRICA [Concomitant]
  4. INSULIN [Concomitant]
  5. WELLBUTRIN [Concomitant]
  6. RESTORIL [Concomitant]

REACTIONS (2)
  - ACUTE CORONARY SYNDROME [None]
  - CEREBROVASCULAR ACCIDENT [None]
